FAERS Safety Report 11694437 (Version 3)
Quarter: 2015Q4

REPORT INFORMATION
  Report Type: Spontaneous
  Country: US (occurrence: US)
  Receive Date: 20151103
  Receipt Date: 20151221
  Transmission Date: 20160304
  Serious: Yes (Hospitalization)
  Sender: FDA-Public Use
  Company Number: US-BAYER-2015-459598

PATIENT
  Age: 17 Year
  Sex: Male
  Weight: 106.58 kg

DRUGS (3)
  1. HELIXATE FS [Suspect]
     Active Substance: ANTIHEMOPHILIC FACTOR, HUMAN RECOMBINANT
     Indication: FACTOR VIII DEFICIENCY
     Dosage: 6000 IU 3X/WEEK, STARTED IN 2001
     Route: 042
     Dates: start: 2001
  2. AMICAR [Concomitant]
     Active Substance: AMINOCAPROIC ACID
  3. TYLENOL [Concomitant]
     Active Substance: ACETAMINOPHEN

REACTIONS (4)
  - Nasopharyngitis [Recovered/Resolved]
  - Haemarthrosis [Recovered/Resolved]
  - Cough [Recovered/Resolved]
  - Asthma [Recovered/Resolved]

NARRATIVE: CASE EVENT DATE: 2015
